FAERS Safety Report 10222584 (Version 1)
Quarter: 2014Q2

REPORT INFORMATION
  Report Type: Spontaneous
  Country: US (occurrence: US)
  Receive Date: 20140606
  Receipt Date: 20140606
  Transmission Date: 20141212
  Serious: No
  Sender: FDA-Public Use
  Company Number: US-MYLANLABS-2013S1015062

PATIENT
  Age: 58 Year
  Sex: Female
  Weight: 59.88 kg

DRUGS (1)
  1. ROPINIROLE TABLETS [Suspect]
     Indication: RESTLESS LEGS SYNDROME
     Dosage: TAKEN BID PRN
     Route: 048

REACTIONS (1)
  - Pruritus generalised [Recovered/Resolved]
